FAERS Safety Report 5671408-1 (Version None)
Quarter: 2008Q1

REPORT INFORMATION
  Report Type: 
  Country: None (occurrence: None)
  Receive Date: 20080318
  Receipt Date: 20080307
  Transmission Date: 20080703
  Serious: Yes (Other)
  Sender: FDA-Public Use
  Company Number: GB-PFIZER INC-2008022288

PATIENT
  Sex: Female

DRUGS (1)
  1. PREGABALIN [Suspect]

REACTIONS (1)
  - CONVULSION [None]
